FAERS Safety Report 6012877-7 (Version None)
Quarter: 2008Q4

REPORT INFORMATION
  Report Type: 
  Country: None (occurrence: None)
  Receive Date: 20081217
  Receipt Date: 20081212
  Transmission Date: 20090506
  Serious: Yes (Hospitalization)
  Sender: FDA-Public Use
  Company Number: 1000003159

PATIENT
  Age: 81 Year
  Sex: Female

DRUGS (3)
  1. TIAZAC [Suspect]
     Indication: HYPERTENSION
     Dosage: 240 MG (240 MG, 1 IN 1 D), ORAL
     Route: 048
     Dates: start: 19980101
  2. DYAZIDE (TABLETS) [Concomitant]
  3. CRESTOR [Concomitant]

REACTIONS (3)
  - MUSCLE SPASMS [None]
  - RESTLESS LEGS SYNDROME [None]
  - TRANSIENT ISCHAEMIC ATTACK [None]
